FAERS Safety Report 4759848-6 (Version None)
Quarter: 2005Q3

REPORT INFORMATION
  Report Type: 
  Country: None (occurrence: None)
  Receive Date: 20050831
  Receipt Date: 20050817
  Transmission Date: 20060218
  Serious: Yes (Hospitalization)
  Sender: FDA-Public Use
  Company Number: USA0508105688

PATIENT
  Age: 74 Year
  Sex: Female

DRUGS (5)
  1. HUMULIN N [Suspect]
     Indication: DIABETES MELLITUS
     Dosage: 15 U AT BEDTIME
     Dates: start: 19960101, end: 20050101
  2. HUMULIN 70/30 [Suspect]
     Indication: DIABETES MELLITUS
     Dosage: 12 U DAY
     Dates: start: 20050815
  3. MEVACON (LOVASTATIN) [Concomitant]
  4. GLUCOTROL [Concomitant]
  5. .. [Concomitant]

REACTIONS (8)
  - BLOOD GLUCOSE DECREASED [None]
  - BLOOD GLUCOSE INCREASED [None]
  - CORONARY ARTERY SURGERY [None]
  - FALL [None]
  - FOREARM FRACTURE [None]
  - GLYCOSYLATED HAEMOGLOBIN INCREASED [None]
  - KNEE ARTHROPLASTY [None]
  - PHARMACEUTICAL PRODUCT COMPLAINT [None]
